FAERS Safety Report 4803905-2 (Version None)
Quarter: 2005Q3

REPORT INFORMATION
  Report Type: 
  Country: None (occurrence: None)
  Receive Date: 20050920
  Receipt Date: 20050713
  Transmission Date: 20060218
  Serious: No
  Sender: FDA-Public Use
  Company Number: US-YAMANOUCHI-YPA20050368

PATIENT
  Age: 49 Year
  Sex: Female
  Weight: 56.6996 kg

DRUGS (3)
  1. VESICARE [Suspect]
     Indication: HYPERTONIC BLADDER
     Dosage: 5 MG QD PO; 2.5 MG QD PO
     Route: 048
     Dates: start: 20050601, end: 20050701
  2. VESICARE [Suspect]
     Indication: HYPERTONIC BLADDER
     Dosage: 5 MG QD PO; 2.5 MG QD PO
     Route: 048
     Dates: start: 20050701
  3. . [Concomitant]

REACTIONS (3)
  - CONSTIPATION [None]
  - DRY EYE [None]
  - URINARY RETENTION [None]
